FAERS Safety Report 12181440 (Version 1)
Quarter: 2016Q1

REPORT INFORMATION
  Report Type: Spontaneous
  Country: US (occurrence: US)
  Receive Date: 20160315
  Receipt Date: 20160315
  Transmission Date: 20160526
  Serious: No
  Sender: FDA-Public Use
  Company Number: GXBR2015US002833

PATIENT
  Sex: Female

DRUGS (1)
  1. ALPRAZOLAM TABLETS USP [Suspect]
     Active Substance: ALPRAZOLAM
     Indication: INSOMNIA
     Dosage: 1 MG, QHS
     Route: 048
     Dates: start: 201210

REACTIONS (1)
  - Somnambulism [Unknown]

NARRATIVE: CASE EVENT DATE: 20151216
